FAERS Safety Report 6793666-2 (Version None)
Quarter: 2010Q2

REPORT INFORMATION
  Report Type: 
  Country: None (occurrence: None)
  Receive Date: 20100624
  Receipt Date: 20090203
  Transmission Date: 20101027
  Serious: Yes (Other)
  Sender: FDA-Public Use
  Company Number: US-PFIZER INC-2009155133

PATIENT

DRUGS (3)
  1. GEODON [Suspect]
  2. PEPCID [Concomitant]
     Dosage: UNK
  3. COGENTIN [Concomitant]
     Dosage: UNK

REACTIONS (1)
  - DYSTONIA [None]
